FAERS Safety Report 13271258 (Version 1)
Quarter: 2017Q1

REPORT INFORMATION
  Report Type: Spontaneous
  Country: US (occurrence: US)
  Receive Date: 20170226
  Receipt Date: 20170226
  Transmission Date: 20170428
  Serious: No
  Sender: FDA-Public Use
  Company Number: US-TEVA-742666ACC

PATIENT
  Sex: Female

DRUGS (1)
  1. GENERIC MORNING AFTER PILL (LEVONORGESTREL) [Suspect]
     Active Substance: LEVONORGESTREL
     Indication: POST COITAL CONTRACEPTION
     Route: 065

REACTIONS (3)
  - Urinary tract infection [Unknown]
  - Menorrhagia [Recovered/Resolved]
  - Abdominal distension [Not Recovered/Not Resolved]
